FAERS Safety Report 8046478-6 (Version None)
Quarter: 2012Q1

REPORT INFORMATION
  Report Type: 
  Country: None (occurrence: None)
  Receive Date: 20120113
  Receipt Date: 20120103
  Transmission Date: 20120608
  Serious: Yes (Life-Threatening, Hospitalization, Other)
  Sender: FDA-Public Use
  Company Number: MW-ABBOTT-11P-100-0848695-00

PATIENT
  Sex: Female
  Weight: 52 kg

DRUGS (4)
  1. LOPINAVIR/RITONAVIR [Suspect]
     Indication: PROPHYLAXIS AGAINST HIV INFECTION
     Dosage: 400/100MG BID
     Route: 048
     Dates: start: 20100112, end: 20100202
  2. LOPINAVIR/RITONAVIR [Suspect]
     Dates: start: 20100302
  3. TRUVADA [Concomitant]
     Indication: PROPHYLAXIS AGAINST HIV INFECTION
     Dates: start: 20100302
  4. COMBIVIR [Concomitant]
     Indication: PROPHYLAXIS AGAINST HIV INFECTION
     Dosage: 300/150MG BID
     Route: 048
     Dates: start: 20100112, end: 20100202

REACTIONS (3)
  - PANCREATITIS [None]
  - BLOOD CREATININE INCREASED [None]
  - VOMITING [None]
